FAERS Safety Report 23900936 (Version 1)
Quarter: 2024Q2

REPORT INFORMATION
  Report Type: Spontaneous
  Country: US (occurrence: None)
  Receive Date: 20240526
  Receipt Date: 20240526
  Transmission Date: 20240716
  Serious: No
  Sender: FDA-Public Use
  Company Number: US-ROCHE-3490018

PATIENT
  Age: 47 Year
  Sex: Female

DRUGS (5)
  1. OCREVUS [Suspect]
     Active Substance: OCRELIZUMAB
     Indication: Relapsing-remitting multiple sclerosis
     Route: 042
     Dates: start: 20190828
  2. COPAXONE [Concomitant]
     Active Substance: GLATIRAMER ACETATE
     Dosage: EVERY DAY AND THEN 3 TIMES A WEEK
     Dates: start: 201001
  3. TECFIDERA [Concomitant]
     Active Substance: DIMETHYL FUMARATE
     Dosage: ONLY TOLERATED 2 DOSES
     Dates: start: 201807
  4. AUBAGIO [Concomitant]
     Active Substance: TERIFLUNOMIDE
  5. TYSABRI [Concomitant]
     Active Substance: NATALIZUMAB
     Dates: start: 201905, end: 201906

REACTIONS (1)
  - Illness [Unknown]
